FAERS Safety Report 14631622 (Version 1)
Quarter: 2018Q1

REPORT INFORMATION
  Report Type: Spontaneous
  Country: HR (occurrence: HR)
  Receive Date: 20180313
  Receipt Date: 20180313
  Transmission Date: 20180509
  Serious: Yes (Hospitalization, Other)
  Sender: FDA-Public Use
  Company Number: HR-PFIZER INC-2018097214

PATIENT
  Age: 41 Year
  Sex: Female
  Weight: 60.5 kg

DRUGS (5)
  1. ZIPANTOLA [Concomitant]
     Active Substance: PANTOPRAZOLE SODIUM
     Dosage: UNK
     Route: 048
  2. SALAZOPYRIN EN [Suspect]
     Active Substance: SULFASALAZINE
     Indication: SPONDYLITIS
     Dosage: 500 MG, 1X/DAY (FOR 2 WEEKS, AFTERWARDS 2X1)
     Route: 048
     Dates: start: 20171215, end: 20171229
  3. KNAVON [Concomitant]
     Indication: CAUDA EQUINA SYNDROME
     Dosage: UNK, 1X/DAY
     Route: 048
     Dates: start: 201412
  4. SALAZOPYRIN EN [Suspect]
     Active Substance: SULFASALAZINE
     Dosage: 500 MG, 2X/DAY
     Route: 048
     Dates: start: 20171230, end: 20180124
  5. ZARACET [Concomitant]
     Indication: CAUDA EQUINA SYNDROME
     Dosage: UNK, 1X/DAY
     Route: 048
     Dates: start: 201412

REACTIONS (7)
  - Gingival swelling [Recovering/Resolving]
  - Gingival pain [Recovering/Resolving]
  - Oesophagitis [Recovering/Resolving]
  - Leukopenia [Recovering/Resolving]
  - Oesophageal candidiasis [Recovering/Resolving]
  - Febrile neutropenia [Recovering/Resolving]
  - Odynophagia [Recovered/Resolved]

NARRATIVE: CASE EVENT DATE: 20180121
